FAERS Safety Report 20146214 (Version 1)
Quarter: 2021Q4

REPORT INFORMATION
  Report Type: Spontaneous
  Country: US (occurrence: US)
  Receive Date: 20211203
  Receipt Date: 20211203
  Transmission Date: 20220303
  Serious: No
  Sender: FDA-Public Use
  Company Number: US-GW PHARMA-202111USGW05918

PATIENT

DRUGS (4)
  1. EPIDIOLEX [Suspect]
     Active Substance: CANNABIDIOL
     Indication: Tuberous sclerosis complex
     Dosage: 50 MILLIGRAM, BID
     Route: 048
     Dates: start: 20211104, end: 20211111
  2. EPIDIOLEX [Suspect]
     Active Substance: CANNABIDIOL
     Indication: Partial seizures
     Dosage: 100 MILLIGRAM, BID
     Route: 048
     Dates: start: 20211112, end: 20211119
  3. EPIDIOLEX [Suspect]
     Active Substance: CANNABIDIOL
     Indication: Epilepsy
     Dosage: 150 MILLIGRAM, BID, FOR 1 WEEK (THEN 200 MILLIGRAM, BID THEREAFTER)
     Route: 048
     Dates: start: 20211120
  4. EPIDIOLEX [Suspect]
     Active Substance: CANNABIDIOL
     Indication: Simple partial seizures

REACTIONS (3)
  - Dry mouth [Unknown]
  - Diarrhoea [Unknown]
  - Emergency care [Unknown]

NARRATIVE: CASE EVENT DATE: 20211101
